FAERS Safety Report 11658151 (Version 2)
Quarter: 2015Q4

REPORT INFORMATION
  Report Type: Spontaneous
  Country: CH (occurrence: CH)
  Receive Date: 20151024
  Receipt Date: 20151028
  Transmission Date: 20160304
  Serious: Yes (Other)
  Sender: FDA-Public Use
  Company Number: CH-AMGEN-CHESP2015109635

PATIENT
  Age: 48 Year
  Sex: Female

DRUGS (5)
  1. AVASTIN [Concomitant]
     Active Substance: BEVACIZUMAB
     Route: 065
  2. XGEVA [Suspect]
     Active Substance: DENOSUMAB
     Indication: PRODUCT USED FOR UNKNOWN INDICATION
     Dosage: UNK
     Route: 065
     Dates: start: 20120515
  3. CISPLATIN. [Concomitant]
     Active Substance: CISPLATIN
     Route: 065
  4. ALECTINIB [Concomitant]
     Active Substance: ALECTINIB
     Route: 065
  5. ALIMTA [Concomitant]
     Active Substance: PEMETREXED DISODIUM
     Route: 065

REACTIONS (5)
  - Malignant neoplasm progression [Unknown]
  - Staphylococcal infection [Unknown]
  - Soft tissue infection [Unknown]
  - Pleural infection bacterial [Unknown]
  - Nausea [Unknown]

NARRATIVE: CASE EVENT DATE: 20121112
